FAERS Safety Report 10030929 (Version 1)
Quarter: 2014Q1

REPORT INFORMATION
  Report Type: Spontaneous
  Country: KR (occurrence: KR)
  Receive Date: 20140323
  Receipt Date: 20140323
  Transmission Date: 20141002
  Serious: Yes (Other)
  Sender: FDA-Public Use
  Company Number: KR-009507513-1403KOR008664

PATIENT
  Sex: Female

DRUGS (2)
  1. FOSAMAX 70MG TABLET [Suspect]
     Route: 048
  2. FOSAMAX TABLET (ALENDRONATE SODIUM) [Suspect]
     Route: 048

REACTIONS (1)
  - Thyroid cancer [Unknown]
